FAERS Safety Report 7527715-0 (Version None)
Quarter: 2011Q2

REPORT INFORMATION
  Report Type: 
  Country: None (occurrence: None)
  Receive Date: 20110607
  Receipt Date: 20110523
  Transmission Date: 20111010
  Serious: Yes (Other)
  Sender: FDA-Public Use
  Company Number: SE-JNJFOC-20110510661

PATIENT
  Sex: Male

DRUGS (1)
  1. REMICADE [Suspect]
     Indication: RHEUMATOID ARTHRITIS
     Route: 042
     Dates: start: 20000101, end: 20080101

REACTIONS (4)
  - CEREBROVASCULAR ACCIDENT [None]
  - THERAPEUTIC RESPONSE DECREASED [None]
  - UMBILICAL HERNIA [None]
  - CARDIAC FIBRILLATION [None]
